FAERS Safety Report 9742640 (Version 1)
Quarter: 2013Q4

REPORT INFORMATION
  Report Type: Spontaneous
  Country: US (occurrence: US)
  Receive Date: 20131210
  Receipt Date: 20131210
  Transmission Date: 20140711
  Serious: No
  Sender: FDA-Public Use
  Company Number: US-GILEAD-2009-0025261

PATIENT
  Sex: Female
  Weight: 46.72 kg

DRUGS (7)
  1. LETAIRIS [Suspect]
     Indication: PULMONARY ARTERIAL HYPERTENSION
     Route: 048
     Dates: start: 20080711
  2. REVATIO [Concomitant]
  3. CARTIA XT [Concomitant]
  4. TRIAM/HCTZ [Concomitant]
  5. PREDNISONE [Concomitant]
  6. TESSALON [Concomitant]
  7. FOSAMAX [Concomitant]

REACTIONS (2)
  - Anxiety [Not Recovered/Not Resolved]
  - Dyspnoea [Not Recovered/Not Resolved]
